FAERS Safety Report 19624451 (Version 2)
Quarter: 2021Q3

REPORT INFORMATION
  Report Type: Spontaneous
  Country: JP (occurrence: JP)
  Receive Date: 20210728
  Receipt Date: 20210810
  Transmission Date: 20211014
  Serious: Yes (Other)
  Sender: FDA-Public Use
  Company Number: JP-JNJFOC-20210755591

PATIENT
  Age: 7 Decade
  Sex: Male

DRUGS (2)
  1. ERYTHROMYCIN. [Concomitant]
     Active Substance: ERYTHROMYCIN
     Dosage: DOSE UNKNOWN
     Route: 065
  2. ITRIZOLE [Suspect]
     Active Substance: ITRACONAZOLE
     Indication: TINEA INFECTION
     Dosage: BETWEEN MEALS
     Route: 048
     Dates: start: 20210601, end: 20210604

REACTIONS (1)
  - Interstitial lung disease [Recovered/Resolved]

NARRATIVE: CASE EVENT DATE: 20210610
